FAERS Safety Report 7639977-X (Version None)
Quarter: 2011Q3

REPORT INFORMATION
  Report Type: 
  Country: None (occurrence: None)
  Receive Date: 20110727
  Receipt Date: 20110718
  Transmission Date: 20111222
  Serious: Yes (Other)
  Sender: FDA-Public Use
  Company Number: PL-ROCHE-790554

PATIENT
  Sex: Male

DRUGS (2)
  1. ROFERON-A [Suspect]
     Indication: HEPATITIS C
     Route: 065
  2. RIBAVIRIN [Suspect]
     Indication: HEPATITIS C
     Route: 065

REACTIONS (2)
  - HAEMANGIOMA [None]
  - CSF PROTEIN ABNORMAL [None]
